FAERS Safety Report 24857701 (Version 2)
Quarter: 2025Q1

REPORT INFORMATION
  Report Type: Spontaneous
  Country: US (occurrence: US)
  Receive Date: 20250117
  Receipt Date: 20250306
  Transmission Date: 20250408
  Serious: Yes (Other)
  Sender: PFIZER
  Company Number: US-PFIZER INC-202500008054

PATIENT
  Age: 75 Year
  Sex: Female

DRUGS (3)
  1. TUKYSA [Suspect]
     Active Substance: TUCATINIB
     Indication: Breast cancer metastatic
     Dosage: TAKE TWO 150MG TABLETS BY MOUTH TWICE DAILY
     Route: 048
     Dates: end: 20250111
  2. CAPECITABINE [Concomitant]
     Active Substance: CAPECITABINE
     Indication: Breast cancer metastatic
  3. TRASTUZUMAB [Concomitant]
     Active Substance: TRASTUZUMAB
     Indication: Breast cancer metastatic

REACTIONS (8)
  - Toxic neuropathy [Unknown]
  - Nephrogenic anaemia [Unknown]
  - Second primary malignancy [Unknown]
  - Ovarian neoplasm [Unknown]
  - Metastases to bone [Unknown]
  - Gastrooesophageal reflux disease [Unknown]
  - Skin disorder [Unknown]
  - Cancer pain [Unknown]
